FAERS Safety Report 16275170 (Version 1)
Quarter: 2019Q2

REPORT INFORMATION
  Report Type: Spontaneous
  Country: US (occurrence: US)
  Receive Date: 20190503
  Receipt Date: 20190503
  Transmission Date: 20190711
  Serious: Yes (Hospitalization)
  Sender: FDA-Public Use
  Company Number: None

PATIENT
  Sex: Female

DRUGS (14)
  1. GLATIRAMER [Suspect]
     Active Substance: GLATIRAMER
     Indication: MULTIPLE SCLEROSIS
     Dosage: ?          OTHER FREQUENCY:3 TIMES A WEEK;?
     Route: 058
     Dates: start: 20171110
  2. DALFAMPRIDINE 10MG ER TAB [Concomitant]
     Active Substance: DALFAMPRIDINE
  3. B12 TAB 1000MCG [Concomitant]
  4. TYLENOL ARTH TAB 650MG [Concomitant]
  5. VITAMIN D3 TAB 1000UNIT [Concomitant]
  6. BACLOFEN TAB 10MG [Concomitant]
  7. OMEPRAZOLE CAP 40MG [Concomitant]
     Active Substance: OMEPRAZOLE
  8. CLARITIN TAB 10MG [Concomitant]
  9. APPLE CIDER TAB VINEGAR [Concomitant]
  10. OXYBUTYNIN TAB 10MG ER [Concomitant]
  11. CYCLOBENZAPR POW HCL [Concomitant]
  12. LISINOPRIL POW [Concomitant]
  13. GABAPENTIN CAP 300MG [Concomitant]
     Active Substance: GABAPENTIN
  14. ALPRAZOLAM POW [Concomitant]

REACTIONS (1)
  - Upper limb fracture [None]
